FAERS Safety Report 19946134 (Version 1)
Quarter: 2021Q4

REPORT INFORMATION
  Report Type: Report from Study
  Country: US (occurrence: US)
  Receive Date: 20211012
  Receipt Date: 20211012
  Transmission Date: 20220303
  Serious: Yes (Hospitalization)
  Sender: FDA-Public Use
  Company Number: US-NOVARTISTESTPH-NVSC2021US232533

PATIENT
  Sex: Male

DRUGS (1)
  1. AFINITOR DISPERZ [Suspect]
     Active Substance: EVEROLIMUS
     Indication: Astrocytoma, low grade
     Dosage: 5 MG, QD
     Route: 048
     Dates: start: 20151205

REACTIONS (1)
  - Seizure [Recovered/Resolved]
